FAERS Safety Report 9336864 (Version 3)
Quarter: 2013Q2

REPORT INFORMATION
  Report Type: Spontaneous
  Country: JP (occurrence: JP)
  Receive Date: 20130607
  Receipt Date: 20130621
  Transmission Date: 20140414
  Serious: Yes (Life-Threatening)
  Sender: FDA-Public Use
  Company Number: JP-PFIZER INC-2013171363

PATIENT
  Age: 30 Year
  Sex: Female
  Weight: 62 kg

DRUGS (1)
  1. ZOSYN [Suspect]
     Indication: PERITONITIS
     Dosage: 4.5 G, 2X/DAY
     Route: 041
     Dates: start: 20130530, end: 20130531

REACTIONS (1)
  - Anaphylactic reaction [Recovered/Resolved]
